FAERS Safety Report 19800325 (Version 1)
Quarter: 2021Q3

REPORT INFORMATION
  Report Type: Report from Study
  Country: GB (occurrence: GB)
  Receive Date: 20210907
  Receipt Date: 20210907
  Transmission Date: 20211014
  Serious: Yes (Hospitalization, Other)
  Sender: FDA-Public Use
  Company Number: GB-TAKEDA-2021TEU007540

PATIENT
  Age: 71 Year
  Sex: Female
  Weight: 54 kg

DRUGS (31)
  1. LANSOPRAZOLE. [Suspect]
     Active Substance: LANSOPRAZOLE
     Indication: PROPHYLAXIS
     Dosage: UNK UNK, QD
     Route: 065
     Dates: start: 20170101
  2. CARBOPLATIN. [Suspect]
     Active Substance: CARBOPLATIN
     Indication: NON-SMALL CELL LUNG CANCER
     Dosage: 450 MILLIGRAM
     Route: 065
     Dates: start: 20200729
  3. ETOPOSIDE. [Suspect]
     Active Substance: ETOPOSIDE
     Indication: NON-SMALL CELL LUNG CANCER
     Dosage: 148 MILLIGRAM
     Route: 065
     Dates: start: 20200729
  4. SANDO K [Concomitant]
     Indication: PROPHYLAXIS
     Dosage: UNK
     Dates: start: 20200828, end: 20200901
  5. SANDO K [Concomitant]
     Dosage: UNK UNK, BID
     Dates: start: 20200819
  6. LINEZOLID. [Suspect]
     Active Substance: LINEZOLID
     Indication: NEUTROPENIC SEPSIS
     Dosage: UNK
     Route: 065
     Dates: start: 20200830
  7. ATEZOLIZUMAB. [Suspect]
     Active Substance: ATEZOLIZUMAB
     Indication: NON-SMALL CELL LUNG CANCER
     Dosage: 1200 MILLIGRAM, Q3WEEKS
     Route: 041
     Dates: start: 20200729
  8. ETOPOSIDE. [Suspect]
     Active Substance: ETOPOSIDE
     Dosage: 600 MILLIGRAM
     Route: 048
     Dates: start: 20200730
  9. AMOXICILLIN. [Suspect]
     Active Substance: AMOXICILLIN
     Indication: PRODUCT USED FOR UNKNOWN INDICATION
     Dosage: UNK
     Route: 065
     Dates: start: 20200810, end: 20200816
  10. SOLPADOL [CODEINE PHOSPHATE/PARACETAMOL] [Suspect]
     Active Substance: ACETAMINOPHEN\CODEINE PHOSPHATE
     Indication: PAIN
     Dosage: UNK UNK, BID
     Route: 065
  11. CLOPIDOGREL [Suspect]
     Active Substance: CLOPIDOGREL BISULFATE
     Indication: HYPERTENSION
     Dosage: UNK UNK, QD
     Route: 065
  12. MORPHINE SULPHATE [Suspect]
     Active Substance: MORPHINE SULFATE
     Indication: PROPHYLAXIS
     Dosage: UNK UNK, BID
     Route: 065
     Dates: start: 20200731
  13. MORPHINE SULPHATE [Suspect]
     Active Substance: MORPHINE SULFATE
     Indication: PAIN
     Dosage: UNK
     Route: 065
     Dates: start: 20200825
  14. VENLAFAXINE HYDROCHLORIDE. [Suspect]
     Active Substance: VENLAFAXINE HYDROCHLORIDE
     Indication: DEPRESSION
     Dosage: UNK UNK, QD
     Route: 065
  15. CIPROFLOXACIN. [Suspect]
     Active Substance: CIPROFLOXACIN
     Indication: PROPHYLAXIS
     Dosage: UNK
     Route: 065
     Dates: start: 20200827
  16. FORMOTEROL [Suspect]
     Active Substance: FORMOTEROL
     Indication: HYPERTENSION
     Dosage: UNK UNK, BID
     Route: 065
     Dates: start: 20200301
  17. ORAMORPH [Suspect]
     Active Substance: MORPHINE SULFATE
     Indication: PAIN
     Dosage: UNK UNK, QD
     Route: 065
     Dates: start: 20200727
  18. CYCLIZINE [Suspect]
     Active Substance: CYCLIZINE
     Indication: VOMITING
     Dosage: UNK UNK, QID
     Route: 065
  19. VORICONAZOLE. [Suspect]
     Active Substance: VORICONAZOLE
     Indication: NEUTROPENIC SEPSIS
     Dosage: UNK UNK, QD
     Route: 065
     Dates: start: 20200830
  20. DIFFLAM (BENZYDAMINE HYDROCHLORIDE) [Suspect]
     Active Substance: BENZYDAMINE HYDROCHLORIDE
     Indication: PROPHYLAXIS
     Dosage: UNK
     Route: 065
     Dates: start: 20200819
  21. FLUCONAZOLE. [Suspect]
     Active Substance: FLUCONAZOLE
     Indication: CANDIDA INFECTION
     Dosage: UNK, QD
     Route: 065
  22. ATEZOLIZUMAB. [Suspect]
     Active Substance: ATEZOLIZUMAB
     Indication: SMALL CELL LUNG CANCER
  23. ZOPICLONE [Suspect]
     Active Substance: ZOPICLONE
     Indication: PROPHYLAXIS
     Dosage: UNK UNK, QD
     Route: 065
     Dates: start: 20200731
  24. AMLODIPINE [Suspect]
     Active Substance: AMLODIPINE BESYLATE
     Indication: HYPERTENSION
     Dosage: UNK UNK, QD
     Route: 065
  25. DEXAMETHASONE. [Suspect]
     Active Substance: DEXAMETHASONE
     Indication: DYSPHAGIA
     Dosage: UNK UNK, QD
     Route: 065
     Dates: start: 20200826
  26. VENLAFAXINE HYDROCHLORIDE. [Suspect]
     Active Substance: VENLAFAXINE HYDROCHLORIDE
     Dosage: UNK UNK, BID
     Route: 065
     Dates: start: 20200820
  27. CYCLIZINE [Suspect]
     Active Substance: CYCLIZINE
     Indication: NEUTROPENIC SEPSIS
  28. LACTULOSE. [Suspect]
     Active Substance: LACTULOSE
     Indication: PROPHYLAXIS
     Dosage: UNK UNK, BID
     Route: 065
  29. SALBUTAMOL [Suspect]
     Active Substance: ALBUTEROL
     Indication: PROPHYLAXIS
     Dosage: UNK
     Route: 065
  30. TIOTROPIUM [Suspect]
     Active Substance: TIOTROPIUM
     Indication: CHRONIC OBSTRUCTIVE PULMONARY DISEASE
     Dosage: UNK UNK, QD
     Route: 065
  31. ATEZOLIZUMAB. [Suspect]
     Active Substance: ATEZOLIZUMAB
     Indication: TRANSITIONAL CELL CARCINOMA

REACTIONS (17)
  - Dehydration [Not Recovered/Not Resolved]
  - Dyspnoea [Not Recovered/Not Resolved]
  - Mucosal inflammation [Not Recovered/Not Resolved]
  - Vomiting [Not Recovered/Not Resolved]
  - Depression [Not Recovered/Not Resolved]
  - Hypokalaemia [Recovered/Resolved]
  - Hypomagnesaemia [Recovered/Resolved]
  - Neutropenic sepsis [Not Recovered/Not Resolved]
  - Anaemia [Not Recovered/Not Resolved]
  - Nausea [Recovered/Resolved]
  - Dysphagia [Not Recovered/Not Resolved]
  - Productive cough [Not Recovered/Not Resolved]
  - Skin candida [Not Recovered/Not Resolved]
  - Mouth ulceration [Recovered/Resolved]
  - Headache [Not Recovered/Not Resolved]
  - Constipation [Not Recovered/Not Resolved]
  - Diarrhoea [Recovered/Resolved]

NARRATIVE: CASE EVENT DATE: 20200730
